FAERS Safety Report 17907209 (Version 5)
Quarter: 2024Q1

REPORT INFORMATION
  Report Type: Spontaneous
  Country: CA (occurrence: None)
  Receive Date: 20200617
  Receipt Date: 20240327
  Transmission Date: 20240410
  Serious: Yes (Hospitalization)
  Sender: FDA-Public Use
  Company Number: CA-ROCHE-2619589

PATIENT
  Age: 61 Year
  Sex: Female
  Weight: 122 kg

DRUGS (12)
  1. ACTEMRA [Suspect]
     Active Substance: TOCILIZUMAB
     Indication: Rheumatoid arthritis
     Route: 042
  2. ACTEMRA [Suspect]
     Active Substance: TOCILIZUMAB
     Dosage: 27 DAYS - THERAPY DURATION, SOLUTION FOR INJECTION IN?PRE-FILLED SYRINGE
     Route: 042
  3. ACTEMRA [Suspect]
     Active Substance: TOCILIZUMAB
     Route: 042
  4. ACTEMRA [Suspect]
     Active Substance: TOCILIZUMAB
     Indication: Rheumatoid arthritis
     Route: 058
  5. LYRICA [Suspect]
     Active Substance: PREGABALIN
     Indication: Pain in extremity
     Route: 065
  6. LYRICA [Suspect]
     Active Substance: PREGABALIN
     Indication: Neck pain
     Route: 065
  7. LYRICA [Suspect]
     Active Substance: PREGABALIN
     Indication: Musculoskeletal pain
  8. LYRICA [Suspect]
     Active Substance: PREGABALIN
     Indication: Arthralgia
  9. HYDROCHLOROTHIAZIDE\TELMISARTAN [Suspect]
     Active Substance: HYDROCHLOROTHIAZIDE\TELMISARTAN
     Indication: Product used for unknown indication
     Route: 065
  10. HYDROCHLOROTHIAZIDE\TELMISARTAN [Suspect]
     Active Substance: HYDROCHLOROTHIAZIDE\TELMISARTAN
     Route: 065
  11. HYDROCHLOROTHIAZIDE\TELMISARTAN [Suspect]
     Active Substance: HYDROCHLOROTHIAZIDE\TELMISARTAN
     Route: 065
  12. METHYLPREDNISOLONE ACETATE [Suspect]
     Active Substance: METHYLPREDNISOLONE ACETATE
     Indication: Product used for unknown indication
     Route: 014

REACTIONS (34)
  - Bronchitis [Not Recovered/Not Resolved]
  - Constipation [Not Recovered/Not Resolved]
  - Cough [Not Recovered/Not Resolved]
  - Dyspnoea [Not Recovered/Not Resolved]
  - Ear disorder [Not Recovered/Not Resolved]
  - Ear infection [Not Recovered/Not Resolved]
  - Eyelid infection [Not Recovered/Not Resolved]
  - Heart rate increased [Not Recovered/Not Resolved]
  - Hypotension [Not Recovered/Not Resolved]
  - Influenza [Not Recovered/Not Resolved]
  - Localised infection [Not Recovered/Not Resolved]
  - Malaise [Not Recovered/Not Resolved]
  - Neuralgia [Not Recovered/Not Resolved]
  - Paranasal cyst [Not Recovered/Not Resolved]
  - Polyp [Not Recovered/Not Resolved]
  - Sinusitis [Not Recovered/Not Resolved]
  - Tinnitus [Not Recovered/Not Resolved]
  - Tympanic membrane perforation [Not Recovered/Not Resolved]
  - Viral infection [Not Recovered/Not Resolved]
  - Weight increased [Not Recovered/Not Resolved]
  - Therapeutic response shortened [Not Recovered/Not Resolved]
  - Weight decreased [Not Recovered/Not Resolved]
  - Arthralgia [Not Recovered/Not Resolved]
  - Musculoskeletal pain [Not Recovered/Not Resolved]
  - Neck pain [Not Recovered/Not Resolved]
  - Pain in extremity [Not Recovered/Not Resolved]
  - Blood pressure systolic increased [Not Recovered/Not Resolved]
  - Hepatic cirrhosis [Not Recovered/Not Resolved]
  - Hepatic steatosis [Not Recovered/Not Resolved]
  - Fungal infection [Not Recovered/Not Resolved]
  - Kidney infection [Not Recovered/Not Resolved]
  - Sepsis [Not Recovered/Not Resolved]
  - Urinary tract infection [Not Recovered/Not Resolved]
  - Haematological infection [Not Recovered/Not Resolved]
